FAERS Safety Report 21521806 (Version 2)
Quarter: 2023Q4

REPORT INFORMATION
  Report Type: Spontaneous
  Country: HN (occurrence: HN)
  Receive Date: 20221028
  Receipt Date: 20231201
  Transmission Date: 20240109
  Serious: Yes (Other)
  Sender: FDA-Public Use
  Company Number: HN-NOVARTISPH-NVSC2022HN242630

PATIENT
  Sex: Female

DRUGS (1)
  1. GLIVEC [Suspect]
     Active Substance: IMATINIB MESYLATE
     Indication: Chronic myeloid leukaemia
     Dosage: 400 MG, QD (1X 400MG, DAILY)
     Route: 065

REACTIONS (6)
  - Stitch abscess [Unknown]
  - Infection [Unknown]
  - Gastritis [Unknown]
  - Eating disorder [Unknown]
  - Product physical issue [Unknown]
  - Inappropriate schedule of product administration [Unknown]
